FAERS Safety Report 20643776 (Version 1)
Quarter: 2022Q1

REPORT INFORMATION
  Report Type: Spontaneous
  Country: US (occurrence: None)
  Receive Date: 20220326
  Receipt Date: 20220326
  Transmission Date: 20220424
  Serious: No
  Sender: FDA-Public Use
  Company Number: None

PATIENT
  Age: 68 Year
  Sex: Female
  Weight: 76.5 kg

DRUGS (17)
  1. ATORVASTATIN CALCIUM [Suspect]
     Active Substance: ATORVASTATIN CALCIUM
     Indication: Blood cholesterol increased
     Dosage: OTHER QUANTITY : 1 TABLET(S)?FREQUENCY : DAILY?
     Route: 048
     Dates: start: 20220309, end: 20220320
  2. PRAVASTATIN [Concomitant]
     Active Substance: PRAVASTATIN
  3. ESTRADIOL [Concomitant]
     Active Substance: ESTRADIOL
  4. TRAMADOL [Concomitant]
     Active Substance: TRAMADOL
  5. DICLOFENAC SODIUM [Concomitant]
     Active Substance: DICLOFENAC SODIUM
  6. LISINOPRIL [Concomitant]
     Active Substance: LISINOPRIL
  7. acetaminiohen [Concomitant]
  8. CALCIUM\MAGNESIUM [Concomitant]
     Active Substance: CALCIUM\MAGNESIUM
  9. ASCORBIC ACID [Concomitant]
     Active Substance: ASCORBIC ACID
  10. biofreeze topical analgesic [Concomitant]
  11. METRONIDAZOLE [Concomitant]
     Active Substance: METRONIDAZOLE
  12. LUTEIN [Concomitant]
     Active Substance: LUTEIN
  13. VITAMIN D3 [Concomitant]
     Active Substance: CHOLECALCIFEROL
  14. thiamine hci [Concomitant]
  15. coengme  q10 [Concomitant]
  16. multivitamin-minerals [Concomitant]
  17. CHONDROITIN SULFATE (BOVINE)\GLUCOSAMINE SULFATE [Concomitant]
     Active Substance: CHONDROITIN SULFATE (BOVINE)\GLUCOSAMINE SULFATE

REACTIONS (2)
  - Musculoskeletal stiffness [None]
  - Insomnia [None]

NARRATIVE: CASE EVENT DATE: 20220320
